FAERS Safety Report 7299888-9 (Version None)
Quarter: 2011Q1

REPORT INFORMATION
  Report Type: 
  Country: None (occurrence: None)
  Receive Date: 20110217
  Receipt Date: 20110208
  Transmission Date: 20110831
  Serious: Yes (Hospitalization, Other)
  Sender: FDA-Public Use
  Company Number: US-ASTRAZENECA-2011SE07663

PATIENT
  Age: 85 Year
  Sex: Female
  Weight: 57 kg

DRUGS (6)
  1. ZOLOFT [Concomitant]
     Indication: DEPRESSION
  2. COSOPT [Suspect]
     Indication: GLAUCOMA
     Route: 047
  3. XALATAN [Suspect]
     Indication: GLAUCOMA
     Dosage: 1 DROP, DAILY IN THE RIGHT EYE
  4. LEVOXYL [Concomitant]
     Indication: THYROID DISORDER
  5. CRESTOR [Suspect]
     Indication: BLOOD CHOLESTEROL INCREASED
     Route: 048
     Dates: start: 20090101, end: 20100101
  6. SIMVASTATIN [Concomitant]
     Indication: BLOOD CHOLESTEROL INCREASED

REACTIONS (2)
  - INTRAOCULAR PRESSURE INCREASED [None]
  - FALL [None]
